FAERS Safety Report 21534839 (Version 1)
Quarter: 2022Q4

REPORT INFORMATION
  Report Type: Spontaneous
  Country: US (occurrence: US)
  Receive Date: 20221101
  Receipt Date: 20221101
  Transmission Date: 20230112
  Serious: No
  Sender: FDA-Public Use
  Company Number: US-MIGRATION_PFIZER-2022BHV001839

PATIENT
  Age: 60 Year
  Sex: Female

DRUGS (6)
  1. NURTEC ODT [Suspect]
     Active Substance: RIMEGEPANT SULFATE
     Indication: Migraine
     Dosage: WAS DISPENSED A TOTAL OF 3 PACKAGES OF 8 TABLETS. THE PRESCRIPTION WAS WRITTEN ON 30-SEP-2021. TAKIN
     Route: 065
  2. QULIPTA [Concomitant]
     Active Substance: ATOGEPANT
     Indication: Migraine
     Dosage: PER PATIENT, I^M ON QULIPTA NOW BUT THAT TAKES UP TO 12 WEEKS TO WORK. I AM ON WEEK 4.
     Route: 065
  3. BOTOX [Concomitant]
     Active Substance: ONABOTULINUMTOXINA
     Indication: Migraine
     Route: 065
  4. GABAPENTIN [Concomitant]
     Active Substance: GABAPENTIN
     Indication: Migraine
     Dosage: PER PATIENT, I WAS ON 2500 MG OF GABAPENTIN. I^M WEANING OFF THAT NOW.
     Route: 065
  5. TOPAMAX [Concomitant]
     Active Substance: TOPIRAMATE
     Indication: Migraine
     Dosage: PER PATIENT, I AM WEANING OFF THE TOPAMAX
     Route: 065
  6. RIZATRIPTAN [Concomitant]
     Active Substance: RIZATRIPTAN
     Indication: Migraine
     Route: 065

REACTIONS (1)
  - Drug ineffective [Unknown]
